FAERS Safety Report 6230872-X (Version None)
Quarter: 2009Q2

REPORT INFORMATION
  Report Type: 
  Country: None (occurrence: None)
  Receive Date: 20090611
  Receipt Date: 20090611
  Transmission Date: 20091009
  Serious: Yes (Hospitalization)
  Sender: FDA-Public Use
  Company Number: None

PATIENT
  Age: 27 Year
  Sex: Male
  Weight: 55 kg

DRUGS (7)
  1. AKURIT 4 [Suspect]
     Indication: TUBERCULOSIS
     Dosage: UNSPECIFIED BID ORAL
     Route: 048
     Dates: start: 20080625, end: 20080825
  2. AKURIT [Suspect]
     Indication: TUBERCULOSIS
     Dosage: UNSPECIFIED BID ORAL
     Route: 048
     Dates: start: 20080825
  3. COVIRO LS 30 (LAMIVUDINE/STAVDINE ) [Suspect]
     Indication: HIV INFECTION
     Dosage: 300MG/60MG BID ORAL
     Route: 048
     Dates: start: 20080825
  4. EFAVIRENZ [Suspect]
     Indication: HIV INFECTION
     Dosage: 600MG ONCE DAY ORAL
     Route: 048
     Dates: start: 20080825
  5. COTRIMOXAZOLE [Concomitant]
  6. FLUCONAZOLE [Concomitant]
  7. DAPSONE [Concomitant]

REACTIONS (4)
  - ALANINE AMINOTRANSFERASE INCREASED [None]
  - ASPARTATE AMINOTRANSFERASE INCREASED [None]
  - BLOOD HIV RNA INCREASED [None]
  - STEVENS-JOHNSON SYNDROME [None]
